FAERS Safety Report 11224994 (Version 1)
Quarter: 2015Q2

REPORT INFORMATION
  Report Type: Report from Study
  Country: US (occurrence: US)
  Receive Date: 20150629
  Receipt Date: 20150629
  Transmission Date: 20150821
  Serious: Yes (Hospitalization)
  Sender: FDA-Public Use
  Company Number: US-CELGENE-163-21880-14090322

PATIENT
  Age: 71 Year
  Sex: Male
  Weight: 81.2 kg

DRUGS (3)
  1. REVLIMID [Suspect]
     Active Substance: LENALIDOMIDE
     Indication: MANTLE CELL LYMPHOMA
     Route: 048
     Dates: start: 20110907
  2. REVLIMID [Suspect]
     Active Substance: LENALIDOMIDE
     Route: 048
     Dates: start: 20140806, end: 20141107
  3. RITUXAN [Suspect]
     Active Substance: RITUXIMAB
     Indication: MANTLE CELL LYMPHOMA
     Route: 065

REACTIONS (4)
  - West Nile viral infection [Not Recovered/Not Resolved]
  - Urosepsis [Not Recovered/Not Resolved]
  - Normal pressure hydrocephalus [Not Recovered/Not Resolved]
  - Weight decreased [Not Recovered/Not Resolved]

NARRATIVE: CASE EVENT DATE: 20140830
